FAERS Safety Report 9342340 (Version 1)
Quarter: 2013Q2

REPORT INFORMATION
  Report Type: Report from Study
  Country: CA (occurrence: CA)
  Receive Date: 20130611
  Receipt Date: 20130611
  Transmission Date: 20140414
  Serious: Yes (Other)
  Sender: FDA-Public Use
  Company Number: CA-JNJFOC-20130603640

PATIENT
  Age: 27 Year
  Sex: Male
  Weight: 100 kg

DRUGS (14)
  1. REMICADE [Suspect]
     Indication: CROHN^S DISEASE
     Route: 042
     Dates: start: 20070807
  2. URSODIOL [Concomitant]
     Route: 065
  3. PREDNISONE [Concomitant]
     Route: 065
  4. CALCIUM [Concomitant]
     Route: 065
  5. VITAMIN D [Concomitant]
     Route: 065
  6. TRAZODONE [Concomitant]
     Route: 065
  7. HYDROXYZINE [Concomitant]
     Route: 065
  8. TECTA [Concomitant]
     Route: 065
  9. CIPRALEX [Concomitant]
     Route: 065
  10. ASACOL [Concomitant]
     Route: 065
  11. CODEINE CONTIN [Concomitant]
     Route: 065
  12. ZOFRAN [Concomitant]
     Route: 065
  13. HYCORT ENEMA [Concomitant]
     Route: 065
  14. TYLENOL 3 [Concomitant]
     Route: 065

REACTIONS (1)
  - Renal colic [Recovered/Resolved]
